FAERS Safety Report 12539669 (Version 1)
Quarter: 2016Q3

REPORT INFORMATION
  Report Type: Spontaneous
  Country: US (occurrence: None)
  Receive Date: 20160707
  Receipt Date: 20160707
  Transmission Date: 20161109
  Serious: Yes (Disabling)
  Sender: FDA-Public Use
  Company Number: None

PATIENT
  Sex: Female

DRUGS (3)
  1. MORPHINE SULF ER 30 MG, 30 MG [Suspect]
     Active Substance: MORPHINE SULFATE
     Indication: RENAL DISORDER
     Route: 048
     Dates: start: 20160630, end: 20160705
  2. MORPHINE SULF ER 30 MG, 30 MG [Suspect]
     Active Substance: MORPHINE SULFATE
     Indication: BACK DISORDER
     Route: 048
     Dates: start: 20160630, end: 20160705
  3. VITAMIN D [Concomitant]
     Active Substance: CHOLECALCIFEROL

REACTIONS (6)
  - Vomiting [None]
  - Hyperhidrosis [None]
  - Tachycardia [None]
  - Product odour abnormal [None]
  - Nausea [None]
  - Tremor [None]

NARRATIVE: CASE EVENT DATE: 20160630
